FAERS Safety Report 15898457 (Version 1)
Quarter: 2019Q1

REPORT INFORMATION
  Report Type: Report from Study
  Country: DE (occurrence: DE)
  Receive Date: 20190201
  Receipt Date: 20190201
  Transmission Date: 20190417
  Serious: Yes (Death, Hospitalization)
  Sender: FDA-Public Use
  Company Number: DE-ACCORD-096789

PATIENT
  Age: 80 Year
  Sex: Male
  Weight: 67 kg

DRUGS (24)
  1. PASPERTIN [Concomitant]
     Indication: PROPHYLAXIS
     Dosage: DAILY DOSE: 10 MG MILLIGRAM(S) EVERY WEEK
     Route: 041
     Dates: start: 20170201
  2. APREPITANT. [Concomitant]
     Active Substance: APREPITANT
     Dosage: 125 MG
     Route: 048
     Dates: start: 20170222, end: 20170301
  3. KEVATRIL [Concomitant]
     Active Substance: GRANISETRON HYDROCHLORIDE
     Indication: PROPHYLAXIS
     Dosage: DAILY DOSE: 3 MG MILLIGRAM(S) EVERY WEEK
     Route: 041
     Dates: start: 20170201, end: 20170201
  4. PANTOZOL [Concomitant]
     Active Substance: PANTOPRAZOLE SODIUM
     Indication: GASTROOESOPHAGEAL REFLUX DISEASE
     Dosage: DAILY DOSE: 80 MG MILLIGRAM(S) EVERY DAY
     Route: 048
     Dates: start: 20170119, end: 20170214
  5. LYRICA [Concomitant]
     Active Substance: PREGABALIN
     Indication: CHEST PAIN
     Dosage: DAILY DOSE: 150 MG MILLIGRAM(S) EVERY DAY
     Route: 048
     Dates: start: 20170101
  6. CARBOPLATIN. [Suspect]
     Active Substance: CARBOPLATIN
     Indication: NON-SMALL CELL LUNG CANCER
     Dosage: 250MG
     Route: 041
     Dates: start: 20170201, end: 20170315
  7. RANITIC [Concomitant]
     Active Substance: RANITIDINE HYDROCHLORIDE
     Indication: PROPHYLAXIS
     Dosage: DAILY DOSE: 50 MG MILLIGRAM(S) EVERY WEEK
     Route: 041
     Dates: start: 20170201
  8. SPIRIVA [Concomitant]
     Active Substance: TIOTROPIUM BROMIDE MONOHYDRATE
     Indication: CHRONIC OBSTRUCTIVE PULMONARY DISEASE
     Dosage: DAILY DOSE: 18 MICROGRAM(S) EVERY DAY
     Route: 055
  9. MOVICOL [Concomitant]
     Active Substance: POLYETHYLENE GLYCOL 3350\POTASSIUM CHLORIDE\SODIUM BICARBONATE\SODIUM CHLORIDE
     Indication: PROPHYLAXIS
     Dosage: DAILY DOSE: 13.81 MG MILLIGRAM(S) EVERY DAY
     Route: 048
     Dates: start: 20170101, end: 20170205
  10. DEXAMETHASONE. [Concomitant]
     Active Substance: DEXAMETHASONE
     Indication: CHRONIC OBSTRUCTIVE PULMONARY DISEASE
     Dosage: DAILY DOSE: 4 MG MILLIGRAM(S) EVERY DAY
     Route: 048
  11. TARGIN [Concomitant]
     Active Substance: NALOXONE HYDROCHLORIDE\OXYCODONE HYDROCHLORIDE
     Indication: CHEST PAIN
     Dosage: DAILY DOSE: 40 MG MILLIGRAM(S) EVERY DAY
     Route: 048
     Dates: start: 20170116
  12. FENISTIL [Concomitant]
     Active Substance: DIMETHINDENE
     Indication: PROPHYLAXIS
     Dosage: DAILY DOSE: 4 MG MILLIGRAM(S) EVERY WEEK
     Route: 041
     Dates: start: 20170201
  13. ABRAXANE [Suspect]
     Active Substance: PACLITAXEL
     Indication: NON-SMALL CELL LUNG CANCER
     Dosage: DAILY DOSE: 100 MG/M2 MILLIGRAM(S)/SQ. METER EVERY DAY
     Route: 041
     Dates: start: 20170201, end: 20170201
  14. AMITRIPTYLINE [Concomitant]
     Active Substance: AMITRIPTYLINE
     Indication: CHEST PAIN
     Dosage: DAILY DOSE: 25 MG MILLIGRAM(S) EVERY DAY
     Route: 048
     Dates: start: 20170116
  15. SEVREDOL [Concomitant]
     Active Substance: MORPHINE
     Indication: CHEST PAIN
     Route: 048
  16. RINGERLOESUNG [Concomitant]
     Indication: PROPHYLAXIS
     Dosage: DAILY DOSE: 1000 ML MILLILITRE(S) EVERY WEEK
     Route: 048
     Dates: start: 20170216
  17. CALCIUM CHLORIDE DIHYDRATE/POTASSIUM CHLORIDE/SODIUM CHLORIDE [Concomitant]
     Indication: GASTROOESOPHAGEAL REFLUX DISEASE
  18. NEPRESOL [Concomitant]
     Indication: HYPOTENSION
     Dosage: DAILY DOSE: 25 MG MILLIGRAM(S) EVERY DAY
     Route: 048
  19. LASIX [Concomitant]
     Active Substance: FUROSEMIDE
     Indication: OEDEMA PERIPHERAL
     Dosage: DAILY DOSE: 40 MG MILLIGRAM(S) EVERY DAY
     Route: 048
     Dates: start: 20170301
  20. NOVALGIN (CAFFEINE\PARACETAMOL\PROPYPHENAZONE) [Concomitant]
     Active Substance: ACETAMINOPHEN\CAFFEINE\PROPYPHENAZONE
     Indication: CHEST PAIN
     Dosage: DAILY DOSE: 4 G GRAM(S) EVERY DAY
     Route: 048
     Dates: start: 20170116
  21. ENALAPRIL-RATIOPHARM [Concomitant]
     Active Substance: ENALAPRIL
     Indication: HYPOTENSION
     Dosage: DAILY DOSE: 20 MG MILLIGRAM(S) EVERY DAY
     Route: 048
  22. DULCOLAX NOS [Concomitant]
     Active Substance: BISACODYL OR DOCUSATE SODIUM
     Indication: PROPHYLAXIS
     Route: 065
  23. DECORTIN [Concomitant]
     Active Substance: PREDNISONE
     Indication: PROPHYLAXIS
     Dosage: DAILY DOSE: 100 MG MILLIGRAM(S) EVERY WEEK
     Route: 041
     Dates: start: 20170201, end: 20170308
  24. ALOXI [Concomitant]
     Active Substance: PALONOSETRON HYDROCHLORIDE
     Indication: PROPHYLAXIS
     Dosage: DAILY DOSE: 250 MG MILLIGRAM(S) EVERY WEEK
     Route: 030
     Dates: start: 20170215

REACTIONS (4)
  - Constipation [Recovered/Resolved]
  - Nausea [Recovered/Resolved]
  - Non-small cell lung cancer [Fatal]
  - Vomiting [Recovered/Resolved]

NARRATIVE: CASE EVENT DATE: 20170204
